FAERS Safety Report 7350722-8 (Version None)
Quarter: 2011Q1

REPORT INFORMATION
  Report Type: 
  Country: None (occurrence: None)
  Receive Date: 20110222
  Receipt Date: 20101102
  Transmission Date: 20110831
  Serious: No
  Sender: FDA-Public Use
  Company Number: 020125

PATIENT
  Sex: Female
  Weight: 113.4 kg

DRUGS (6)
  1. TOPAMAX [Suspect]
     Indication: COMPLEX PARTIAL SEIZURES
     Dosage: (200 MG QD ORAL)
     Route: 048
     Dates: start: 20101008
  2. NAMENDA [Concomitant]
  3. TRILEPTAL [Suspect]
     Indication: COMPLEX PARTIAL SEIZURES
     Dosage: (300 MG BID, 300MG IN THE MORNING + 600 MG AT BEDTIME ORAL)
     Route: 048
     Dates: start: 20101008
  4. LACOSAMIDE [Suspect]
     Indication: COMPLEX PARTIAL SEIZURES
     Dosage: (600 MG, ...00MG+400MG ORAL), (200 MG BID, 200MG IN THE MORNING + 600MG AT BED TIME ORAL)
     Route: 048
     Dates: start: 20101008
  5. LACOSAMIDE [Suspect]
     Indication: COMPLEX PARTIAL SEIZURES
     Dosage: (600 MG, ...00MG+400MG ORAL), (200 MG BID, 200MG IN THE MORNING + 600MG AT BED TIME ORAL)
     Route: 048
     Dates: start: 20090101
  6. LYRICA [Suspect]
     Indication: COMPLEX PARTIAL SEIZURES
     Dosage: (100 MG BID, 100MG IN THE MORNING + 100 MG AT BEDTIME ORAL)
     Route: 048
     Dates: start: 20101008

REACTIONS (11)
  - TREMOR [None]
  - HAND FRACTURE [None]
  - MEDICATION ERROR [None]
  - LETHARGY [None]
  - DIPLOPIA [None]
  - DIZZINESS [None]
  - NAUSEA [None]
  - GAIT DISTURBANCE [None]
  - CONFUSIONAL STATE [None]
  - OVERDOSE [None]
  - DRUG INTERACTION [None]
